FAERS Safety Report 10896605 (Version 1)
Quarter: 2015Q1

REPORT INFORMATION
  Report Type: Spontaneous
  Country: JP (occurrence: JP)
  Receive Date: 20150309
  Receipt Date: 20150309
  Transmission Date: 20150721
  Serious: Yes (Death, Other)
  Sender: FDA-Public Use
  Company Number: JP-TEVA-545694ISR

PATIENT
  Age: 65 Year
  Sex: Male

DRUGS (10)
  1. FLUOROURACIL. [Suspect]
     Active Substance: FLUOROURACIL
     Indication: COLON CANCER
     Route: 065
     Dates: end: 201308
  2. CETUXIMAB [Suspect]
     Active Substance: CETUXIMAB
     Indication: COLON CANCER
     Route: 065
     Dates: end: 201308
  3. BETAMETHASONE [Suspect]
     Active Substance: BETAMETHASONE
     Indication: ECTHYMA
     Dosage: 2 MILLIGRAM DAILY; 2 MG/DAY
     Route: 048
  4. BETAMETHASONE [Suspect]
     Active Substance: BETAMETHASONE
     Indication: ECTHYMA
     Dosage: 1 MILLIGRAM DAILY; 1 MG/DAY
     Route: 048
  5. TETRACYCLINE [Concomitant]
     Active Substance: TETRACYCLINE
     Indication: ECTHYMA
     Dosage: 1000 MILLIGRAM DAILY; 1000 MG/DAY
     Route: 048
  6. PANITUMUMAB [Suspect]
     Active Substance: PANITUMUMAB
     Indication: COLON CANCER
     Route: 065
     Dates: start: 201302
  7. TETRACYCLINE [Concomitant]
     Active Substance: TETRACYCLINE
     Indication: ECTHYMA
     Dosage: 500 MILLIGRAM DAILY; 500 MG/DAY
     Route: 048
  8. LEVOFOLINIC ACID [Suspect]
     Active Substance: LEVOLEUCOVORIN
     Indication: COLON CANCER
     Route: 065
     Dates: end: 201308
  9. IRINOTECAN [Suspect]
     Active Substance: IRINOTECAN
     Indication: COLON CANCER
     Route: 065
     Dates: end: 201308
  10. BETAMETHASONE [Suspect]
     Active Substance: BETAMETHASONE
     Indication: ECTHYMA
     Dosage: .5 MILLIGRAM DAILY; 0.5 MG/DAY
     Route: 048

REACTIONS (4)
  - Condition aggravated [Fatal]
  - Diabetes mellitus [Unknown]
  - Malaise [Unknown]
  - Ecthyma [Recovering/Resolving]
